FAERS Safety Report 18490755 (Version 2)
Quarter: 2024Q2

REPORT INFORMATION
  Report Type: Spontaneous
  Country: US (occurrence: US)
  Receive Date: 20201111
  Receipt Date: 20240429
  Transmission Date: 20240715
  Serious: No
  Sender: FDA-Public Use
  Company Number: US-SANOFI-00345261

PATIENT
  Age: 74 Year
  Sex: Female

DRUGS (2)
  1. TOUJEO MAX [Suspect]
     Active Substance: INSULIN GLARGINE
     Dosage: UNKNOWN
     Route: 065
  2. TOUJEO [Suspect]
     Active Substance: INSULIN GLARGINE
     Indication: Type 2 diabetes mellitus
     Dosage: 39 UNITS IN THE MORNING, 27 UNITS AT NIGHT, BID
     Route: 058
     Dates: start: 2014

REACTIONS (3)
  - Product storage error [Unknown]
  - Product dispensing error [Unknown]
  - Off label use [Unknown]
